FAERS Safety Report 9009765 (Version 1)
Quarter: 2013Q1

REPORT INFORMATION
  Report Type: Spontaneous
  Country: GB (occurrence: GB)
  Receive Date: 20130110
  Receipt Date: 20130110
  Transmission Date: 20140127
  Serious: Yes (Hospitalization)
  Sender: FDA-Public Use
  Company Number: GB-ROCHE-1178086

PATIENT
  Age: 41 Year
  Sex: 0

DRUGS (4)
  1. MABTHERA [Suspect]
     Indication: RHEUMATOID ARTHRITIS
     Route: 042
     Dates: end: 201203
  2. FERROUS SULPHATE [Concomitant]
  3. PREDNISOLONE [Concomitant]
  4. SULPHASALAZINE [Concomitant]

REACTIONS (5)
  - Antineutrophil cytoplasmic antibody positive [Recovered/Resolved]
  - Liver function test abnormal [Recovered/Resolved]
  - Pyrexia [Recovered/Resolved]
  - Rash [Recovered/Resolved]
  - Malaise [Recovered/Resolved]
